FAERS Safety Report 11220269 (Version 1)
Quarter: 2015Q2

REPORT INFORMATION
  Report Type: Spontaneous
  Country: AU (occurrence: AU)
  Receive Date: 20150625
  Receipt Date: 20150625
  Transmission Date: 20150821
  Serious: Yes (Other)
  Sender: FDA-Public Use
  Company Number: AU-ALLERGAN-1511065US

PATIENT
  Age: 79 Year

DRUGS (1)
  1. COMBIGAN[R] [Suspect]
     Active Substance: BRIMONIDINE TARTRATE\TIMOLOL MALEATE
     Indication: PRODUCT USED FOR UNKNOWN INDICATION
     Dosage: UNK
     Route: 047
     Dates: end: 20141217

REACTIONS (5)
  - Ocular hyperaemia [Recovered/Resolved]
  - Eye allergy [Recovered/Resolved]
  - Delirium [Recovered/Resolved]
  - Conjunctivitis [Recovered/Resolved]
  - Confusional state [Recovered/Resolved]
